FAERS Safety Report 13881630 (Version 2)
Quarter: 2017Q4

REPORT INFORMATION
  Report Type: Spontaneous
  Country: GB (occurrence: GB)
  Receive Date: 20170818
  Receipt Date: 20171213
  Transmission Date: 20180320
  Serious: Yes (Other)
  Sender: FDA-Public Use
  Company Number: GB-MYLANLABS-2017M1050691

PATIENT
  Age: 37 Year
  Sex: Male

DRUGS (6)
  1. BORTEZOMIB [Suspect]
     Active Substance: BORTEZOMIB
     Dosage: UNK
     Route: 065
     Dates: start: 2015
  2. THALIDOMIDE [Suspect]
     Active Substance: THALIDOMIDE
     Indication: PLASMA CELL MYELOMA
     Dosage: UNK
     Route: 065
     Dates: start: 2015
  3. DEXAMETHASONE. [Suspect]
     Active Substance: DEXAMETHASONE
     Indication: PLASMA CELL MYELOMA
  4. THALIDOMIDE [Suspect]
     Active Substance: THALIDOMIDE
     Indication: PLASMA CELL MYELOMA
  5. DEXAMETHASONE. [Suspect]
     Active Substance: DEXAMETHASONE
     Indication: PLASMA CELL MYELOMA
     Dosage: UNK
     Route: 065
     Dates: start: 2015
  6. BORTEZOMIB [Suspect]
     Active Substance: BORTEZOMIB
     Indication: PLASMA CELL MYELOMA

REACTIONS (1)
  - Cerebral venous thrombosis [Recovered/Resolved]

NARRATIVE: CASE EVENT DATE: 201508
